FAERS Safety Report 5503601-2 (Version None)
Quarter: 2007Q4

REPORT INFORMATION
  Report Type: 
  Country: None (occurrence: None)
  Receive Date: 20071029
  Receipt Date: 20071017
  Transmission Date: 20080405
  Serious: Yes (Other)
  Sender: FDA-Public Use
  Company Number: 2007SP021096

PATIENT
  Age: 38 Year
  Sex: Male

DRUGS (3)
  1. PEG-INTRON [Suspect]
     Indication: HEPATITIS C
     Dosage: ; QW; SC
     Route: 058
     Dates: start: 20041216, end: 20050620
  2. REBETOL [Suspect]
     Indication: HEPATITIS C
     Dosage: ; QD; PO
     Route: 048
     Dates: start: 20041216, end: 20050620
  3. PEGINTERFERON ALFA-2A (PEGINTERFERON ALFA-2A) [Suspect]
     Indication: HEPATITIS C
     Dates: start: 20050101, end: 20060101

REACTIONS (5)
  - AUTOIMMUNE HEPATITIS [None]
  - CHRONIC HEPATITIS [None]
  - CONDITION AGGRAVATED [None]
  - HEPATITIS C RNA POSITIVE [None]
  - LIVER DISORDER [None]
